FAERS Safety Report 14557337 (Version 2)
Quarter: 2018Q3

REPORT INFORMATION
  Report Type: Spontaneous
  Country: US (occurrence: US)
  Receive Date: 20180221
  Receipt Date: 20180807
  Transmission Date: 20181010
  Serious: No
  Sender: FDA-Public Use
  Company Number: US-BIOGEN-2018BI00525511

PATIENT
  Sex: Female

DRUGS (1)
  1. TYSABRI [Suspect]
     Active Substance: NATALIZUMAB
     Indication: MULTIPLE SCLEROSIS
     Route: 065
     Dates: start: 20170504

REACTIONS (11)
  - Fatigue [Unknown]
  - Nausea [Unknown]
  - Anxiety [Unknown]
  - Hypoaesthesia [Unknown]
  - Drug dose omission [Unknown]
  - Joint dislocation [Unknown]
  - Fall [Recovered/Resolved]
  - Pain in extremity [Unknown]
  - Headache [Unknown]
  - Balance disorder [Unknown]
  - Vomiting [Unknown]
